FAERS Safety Report 13589747 (Version 1)
Quarter: 2017Q2

REPORT INFORMATION
  Report Type: Spontaneous
  Country: US (occurrence: US)
  Receive Date: 20170527
  Receipt Date: 20170527
  Transmission Date: 20170830
  Serious: Yes (Other)
  Sender: FDA-Public Use
  Company Number: None

PATIENT
  Age: 64 Year
  Sex: Male
  Weight: 82.35 kg

DRUGS (4)
  1. FENTANAL PATCH [Concomitant]
  2. FENTANYL TRANSDERMAL SYSTEM [Suspect]
     Active Substance: FENTANYL
     Indication: PAIN
     Dosage: 75MCG/HR.; 5 PATCH(ES); 72 HOURS?
     Route: 062
     Dates: start: 20170503
  3. LYRICA [Concomitant]
     Active Substance: PREGABALIN
  4. REMERON [Concomitant]
     Active Substance: MIRTAZAPINE

REACTIONS (1)
  - Drug ineffective [None]

NARRATIVE: CASE EVENT DATE: 20170503
